FAERS Safety Report 15586641 (Version 1)
Quarter: 2018Q4

REPORT INFORMATION
  Report Type: Spontaneous
  Country: GB (occurrence: GB)
  Receive Date: 20181105
  Receipt Date: 20181105
  Transmission Date: 20190205
  Serious: Yes (Hospitalization)
  Sender: FDA-Public Use
  Company Number: GB-ACELLA PHARMACEUTICALS, LLC-2058409

PATIENT
  Age: 18 Year
  Sex: Female
  Weight: 35.3 kg

DRUGS (1)
  1. GABAPENTIN. [Suspect]
     Active Substance: GABAPENTIN
     Indication: MUSCULOSKELETAL PAIN

REACTIONS (3)
  - Abdominal pain lower [Recovering/Resolving]
  - Eosinophilic colitis [Recovering/Resolving]
  - Diarrhoea [Recovering/Resolving]
